FAERS Safety Report 13666996 (Version 1)
Quarter: 2017Q2

REPORT INFORMATION
  Report Type: Spontaneous
  Country: US (occurrence: US)
  Receive Date: 20170619
  Receipt Date: 20170619
  Transmission Date: 20170830
  Serious: No
  Sender: FDA-Public Use
  Company Number: US-ROCHE-1299739

PATIENT
  Age: 74 Year
  Sex: Female

DRUGS (12)
  1. XELODA [Suspect]
     Active Substance: CAPECITABINE
     Indication: BONE CANCER
  2. XELODA [Suspect]
     Active Substance: CAPECITABINE
     Indication: METASTASES TO BONE MARROW
  3. VITAMIN E [Concomitant]
     Active Substance: .ALPHA.-TOCOPHEROL
  4. FUROSEMIDE. [Concomitant]
     Active Substance: FUROSEMIDE
  5. LOSARTAN. [Concomitant]
     Active Substance: LOSARTAN
  6. OMEPRAZOLE. [Concomitant]
     Active Substance: OMEPRAZOLE
  7. VITAMIN C [Concomitant]
     Active Substance: ASCORBIC ACID
  8. XELODA [Suspect]
     Active Substance: CAPECITABINE
     Indication: BREAST CANCER
     Dosage: WEEKDAYS ONLY WEEK-ENDS OFF, 2 TABS IN AM, TABS IN PM
     Route: 048
     Dates: start: 20130726
  9. FISH OIL [Concomitant]
     Active Substance: FISH OIL
  10. EFFEXOR [Concomitant]
     Active Substance: VENLAFAXINE HYDROCHLORIDE
  11. VITAMIN D3 [Concomitant]
     Active Substance: CHOLECALCIFEROL
  12. ASPIRIN. [Concomitant]
     Active Substance: ASPIRIN

REACTIONS (13)
  - Dry eye [Unknown]
  - Erythema [Unknown]
  - Burning sensation [Unknown]
  - Dysgeusia [Unknown]
  - Erythema [Unknown]
  - Vision blurred [Unknown]
  - Limb injury [Unknown]
  - Neuropathy peripheral [Unknown]
  - Oral discomfort [Unknown]
  - Dry skin [Unknown]
  - Skin exfoliation [Unknown]
  - Burning sensation [Unknown]
  - Laceration [Unknown]

NARRATIVE: CASE EVENT DATE: 20140210
